FAERS Safety Report 15732521 (Version 2)
Quarter: 2019Q1

REPORT INFORMATION
  Report Type: Spontaneous
  Country: US (occurrence: US)
  Receive Date: 20181217
  Receipt Date: 20190206
  Transmission Date: 20190417
  Serious: Yes (Hospitalization)
  Sender: FDA-Public Use
  Company Number: US-VIFOR (INTERNATIONAL) INC.-VIT-2018-12259

PATIENT
  Age: 72 Year
  Sex: Male

DRUGS (20)
  1. METANX [Concomitant]
     Active Substance: LEVOMEFOLATE CALCIUM\METHYLCOBALAMIN\PYRIDOXAL PHOSPHATE ANHYDROUS
  2. VASOTEC [Concomitant]
     Active Substance: ENALAPRIL MALEATE
  3. ELIQUIS [Concomitant]
     Active Substance: APIXABAN
  4. NITROGLYCERIN. [Concomitant]
     Active Substance: NITROGLYCERIN
  5. STARLIX [Concomitant]
     Active Substance: NATEGLINIDE
  6. PREDNISONE. [Concomitant]
     Active Substance: PREDNISONE
  7. EPIPEN [Concomitant]
     Active Substance: EPINEPHRINE
  8. LOVAZA [Concomitant]
     Active Substance: OMEGA-3-ACID ETHYL ESTERS
  9. TRADJENTA [Concomitant]
     Active Substance: LINAGLIPTIN
  10. TORSEMIDE. [Concomitant]
     Active Substance: TORSEMIDE
  11. KEPPRA [Concomitant]
     Active Substance: LEVETIRACETAM
  12. VELTASSA [Suspect]
     Active Substance: PATIROMER
     Indication: HYPERKALAEMIA
     Route: 048
     Dates: start: 20160617
  13. IMURAN [Concomitant]
     Active Substance: AZATHIOPRINE
  14. BETAPACE [Concomitant]
     Active Substance: SOTALOL HYDROCHLORIDE
  15. B6 [Concomitant]
     Active Substance: PYRIDOXINE HYDROCHLORIDE
  16. LIPITOR [Concomitant]
     Active Substance: ATORVASTATIN CALCIUM
  17. MYFORTIC [Concomitant]
     Active Substance: MYCOPHENOLATE SODIUM
  18. ZANTAC [Concomitant]
     Active Substance: RANITIDINE HYDROCHLORIDE
  19. DIOVAN [Concomitant]
     Active Substance: VALSARTAN
  20. NITRO-DUR [Concomitant]
     Active Substance: NITROGLYCERIN

REACTIONS (5)
  - Malaise [Unknown]
  - Seizure [Unknown]
  - Blood potassium abnormal [Unknown]
  - Aortic valve replacement [Unknown]
  - Cerebrovascular accident [Unknown]

NARRATIVE: CASE EVENT DATE: 201811
